FAERS Safety Report 22382742 (Version 1)
Quarter: 2023Q2

REPORT INFORMATION
  Report Type: Spontaneous
  Country: US (occurrence: US)
  Receive Date: 20230530
  Receipt Date: 20230530
  Transmission Date: 20230721
  Serious: No
  Sender: FDA-Public Use
  Company Number: US-STERISCIENCE B.V.-2022-ST-000174

PATIENT
  Age: 35 Year
  Sex: Female

DRUGS (8)
  1. METOPROLOL [Suspect]
     Active Substance: METOPROLOL
     Indication: Product used for unknown indication
     Dosage: UNK
     Route: 065
  2. BUPIVACAINE [Suspect]
     Active Substance: BUPIVACAINE
     Indication: Epidural analgesia
     Dosage: UNK
     Route: 008
  3. FLECAINIDE [Suspect]
     Active Substance: FLECAINIDE
     Indication: Non-compaction cardiomyopathy
     Dosage: UNK
     Route: 065
  4. ASPIRIN [Suspect]
     Active Substance: ASPIRIN
     Indication: Non-compaction cardiomyopathy
     Dosage: UNK
     Route: 065
  5. FENTANYL [Suspect]
     Active Substance: FENTANYL
     Indication: Epidural analgesia
     Dosage: 2 UG/ML PROGRAMMED INTERMITTENT EPIDURAL 6 MILLILITER  EVERY 45 MINUTES
     Route: 008
  6. MEXILETINE [Suspect]
     Active Substance: MEXILETINE
     Indication: Product used for unknown indication
     Dosage: UNK
     Route: 065
  7. EPHEDRINE [Suspect]
     Active Substance: EPHEDRINE
     Indication: Drug therapy
     Dosage: UNK
     Route: 065
  8. OXYTOCIN [Suspect]
     Active Substance: OXYTOCIN
     Indication: Labour induction
     Dosage: UNK
     Route: 042

REACTIONS (2)
  - Maternal exposure during pregnancy [Unknown]
  - Maternal exposure during delivery [Unknown]
